FAERS Safety Report 5039165-X (Version None)
Quarter: 2006Q2

REPORT INFORMATION
  Report Type: 
  Country: None (occurrence: None)
  Receive Date: 20060623
  Receipt Date: 20060616
  Transmission Date: 20061013
  Serious: Yes (Other)
  Sender: FDA-Public Use
  Company Number: CIP06001387

PATIENT
  Age: 70 Year
  Sex: Male

DRUGS (2)
  1. ACTONEL [Suspect]
     Indication: OSTEOPOROSIS
     Dosage: 35 MG ONCE WEEKLY,
     Dates: start: 20040101
  2. URSO 250 [Concomitant]

REACTIONS (7)
  - FAILURE OF IMPLANT [None]
  - GINGIVAL RECESSION [None]
  - IMPAIRED HEALING [None]
  - JAW DISORDER [None]
  - OSTEOMYELITIS [None]
  - PERIODONTITIS [None]
  - TOOTH EXTRACTION [None]
